FAERS Safety Report 7968100-7 (Version None)
Quarter: 2011Q4

REPORT INFORMATION
  Report Type: 
  Country: None (occurrence: None)
  Receive Date: 20111121
  Receipt Date: 20110915
  Transmission Date: 20120403
  Serious: No
  Sender: FDA-Public Use
  Company Number: 1000023984

PATIENT
  Age: 67 Year
  Sex: Male

DRUGS (9)
  1. VIIBRYD [Suspect]
     Indication: MAJOR DEPRESSION
     Dosage: 10 MG (10 MG, 1 IN 1 D), ORAL 20 MG (20 GBQ, 1 IN 1 D), ORAL
     Route: 048
     Dates: start: 20110829, end: 20110904
  2. VIIBRYD [Suspect]
     Indication: MAJOR DEPRESSION
     Dosage: 10 MG (10 MG, 1 IN 1 D), ORAL 20 MG (20 GBQ, 1 IN 1 D), ORAL
     Route: 048
     Dates: start: 20110822, end: 20110828
  3. KLONOPIN [Concomitant]
  4. AVODART (DUTASTERIDE) (DUTASTERIDE) [Concomitant]
  5. NEURONTIN [Concomitant]
  6. LIPITOR [Concomitant]
  7. PREVACID (LANSOPRAZOLE) (LANSOPRAZOLE) [Concomitant]
  8. VIIBRYD [Suspect]
     Indication: MAJOR DEPRESSION
     Dosage: 40 MG, (40 MG, 1 IN 1 D), ORAL
     Route: 048
     Dates: start: 20110905
  9. LEVOTHYROXINE (LEVOTHYROXINE SODIUM) (LEVOTHYROXINE SODIUM) [Concomitant]

REACTIONS (5)
  - DECREASED APPETITE [None]
  - INSOMNIA [None]
  - DIARRHOEA [None]
  - NAUSEA [None]
  - PALPITATIONS [None]
